FAERS Safety Report 5214915-8 (Version None)
Quarter: 2007Q1

REPORT INFORMATION
  Report Type: 
  Country: None (occurrence: None)
  Receive Date: 20061108
  Receipt Date: 20060522
  Transmission Date: 20070707
  Serious: Yes (Other)
  Sender: FDA-Public Use
  Company Number: PHEH2006US06682

PATIENT
  Age: 57 Year
  Sex: Female

DRUGS (3)
  1. ESTRADERM [Suspect]
     Indication: MENOPAUSAL SYMPTOMS
  2. PREMARIN [Suspect]
     Indication: MENOPAUSAL SYMPTOMS
  3. CENESTIN [Suspect]
     Indication: MENOPAUSAL SYMPTOMS

REACTIONS (2)
  - BREAST CANCER [None]
  - THROMBOSIS [None]
